FAERS Safety Report 17578021 (Version 1)
Quarter: 2020Q1

REPORT INFORMATION
  Report Type: Spontaneous
  Country: DE (occurrence: DE)
  Receive Date: 20200324
  Receipt Date: 20200324
  Transmission Date: 20200409
  Serious: Yes (Hospitalization, Other)
  Sender: FDA-Public Use
  Company Number: NVSC2020DE081172

PATIENT
  Age: 77 Year
  Sex: Male

DRUGS (1)
  1. ILARIS [Suspect]
     Active Substance: CANAKINUMAB
     Indication: MUCKLE-WELLS SYNDROME
     Dosage: 150 MG, EVERY 8 WEEKS
     Route: 065

REACTIONS (5)
  - Bradyarrhythmia [Unknown]
  - Vascular graft stenosis [Unknown]
  - Vertigo [Unknown]
  - Vascular stenosis [Unknown]
  - Arteriosclerosis [Unknown]
